FAERS Safety Report 7661289-9 (Version None)
Quarter: 2011Q3

REPORT INFORMATION
  Report Type: 
  Country: None (occurrence: None)
  Receive Date: 20110805
  Receipt Date: 20101001
  Transmission Date: 20111222
  Serious: No
  Sender: FDA-Public Use
  Company Number: US-ABBOTT-10P-163-0676027-00

PATIENT
  Sex: Female
  Weight: 72.64 kg

DRUGS (6)
  1. PRILOSEC [Concomitant]
     Indication: PRODUCT USED FOR UNKNOWN INDICATION
  2. NIASPAN [Suspect]
     Indication: BLOOD CHOLESTEROL INCREASED
     Dates: start: 20100919
  3. CITALIS [Concomitant]
     Indication: ANXIETY
  4. CALCIUM ACETATE [Concomitant]
     Indication: PRODUCT USED FOR UNKNOWN INDICATION
  5. GABAPENTIN [Concomitant]
     Indication: RESTLESS LEGS SYNDROME
  6. VIT D OTC [Concomitant]
     Indication: PRODUCT USED FOR UNKNOWN INDICATION

REACTIONS (5)
  - ERYTHEMA [None]
  - SWELLING FACE [None]
  - BURNING SENSATION [None]
  - LIP SWELLING [None]
  - EYELID OEDEMA [None]
